FAERS Safety Report 6183684-X (Version None)
Quarter: 2009Q2

REPORT INFORMATION
  Report Type: 
  Country: None (occurrence: None)
  Receive Date: 20090506
  Receipt Date: 20090429
  Transmission Date: 20091009
  Serious: Yes (Hospitalization)
  Sender: FDA-Public Use
  Company Number: CHNY2009GB01837

PATIENT
  Age: 62 Year
  Sex: Male

DRUGS (5)
  1. NICOTINE [Suspect]
     Indication: SMOKING CESSATION THERAPY
     Dosage: 1DF, TRANSDERMAL
     Route: 062
     Dates: start: 20090416, end: 20090416
  2. AMLODIPINE [Concomitant]
  3. ASPIRIN [Concomitant]
  4. DOXAZOSIN MESYLATE [Concomitant]
  5. RAMIPRIL [Concomitant]

REACTIONS (1)
  - HYPERSENSITIVITY [None]
